FAERS Safety Report 4423975-3 (Version None)
Quarter: 2004Q3

REPORT INFORMATION
  Report Type: 
  Country: None (occurrence: None)
  Receive Date: 20040805
  Receipt Date: 20040721
  Transmission Date: 20050211
  Serious: Yes (Other)
  Sender: FDA-Public Use
  Company Number: DSA_24739_2004

PATIENT
  Age: 38 Year
  Sex: Female
  Weight: 65 kg

DRUGS (3)
  1. KEIMAX [Suspect]
     Indication: BRONCHITIS
     Dosage: 400 MG Q DAY PO
     Route: 048
     Dates: start: 20040625, end: 20040702
  2. MULTI-VITAMINS [Concomitant]
  3. ACETYLCYSTEINE [Concomitant]

REACTIONS (3)
  - MULTIPLE SCLEROSIS [None]
  - OPTIC NEURITIS [None]
  - VISION BLURRED [None]
